FAERS Safety Report 21975091 (Version 1)
Quarter: 2023Q1

REPORT INFORMATION
  Report Type: Spontaneous
  Country: ES (occurrence: ES)
  Receive Date: 20230209
  Receipt Date: 20230209
  Transmission Date: 20230418
  Serious: Yes (Life-Threatening, Hospitalization)
  Sender: FDA-Public Use
  Company Number: None

PATIENT
  Age: 31 Year
  Sex: Male

DRUGS (3)
  1. FLUOROURACIL [Suspect]
     Active Substance: FLUOROURACIL
     Indication: Colorectal adenocarcinoma
     Dates: start: 20221026, end: 20221026
  2. LEUCOVORIN [Concomitant]
     Active Substance: LEUCOVORIN
     Indication: Colorectal adenocarcinoma
     Dates: start: 20221026, end: 20221026
  3. OXALIPLATIN [Concomitant]
     Active Substance: OXALIPLATIN
     Indication: Colorectal adenocarcinoma
     Dates: start: 20221026, end: 20221026

REACTIONS (2)
  - Myocarditis [Recovered/Resolved]
  - Cardiogenic shock [Recovered/Resolved]

NARRATIVE: CASE EVENT DATE: 20221028
